FAERS Safety Report 7319921-5 (Version None)
Quarter: 2011Q1

REPORT INFORMATION
  Report Type: 
  Country: None (occurrence: None)
  Receive Date: 20110228
  Receipt Date: 20101208
  Transmission Date: 20110831
  Serious: No
  Sender: FDA-Public Use
  Company Number: A0898589A

PATIENT
  Age: 46 Year
  Sex: Female

DRUGS (3)
  1. LAMICTAL [Suspect]
     Route: 048
     Dates: end: 20100301
  2. XANAX [Concomitant]
  3. CELEXA [Concomitant]

REACTIONS (1)
  - EYELID FUNCTION DISORDER [None]
